FAERS Safety Report 26200040 (Version 1)
Quarter: 2025Q4

REPORT INFORMATION
  Report Type: Spontaneous
  Country: EU (occurrence: EU)
  Receive Date: 20251225
  Receipt Date: 20251225
  Transmission Date: 20260117
  Serious: Yes (Other)
  Sender: NOVARTIS
  Company Number: None

PATIENT
  Age: 65 Year
  Sex: Female

DRUGS (1)
  1. TAFINLAR [Suspect]
     Active Substance: DABRAFENIB MESYLATE
     Indication: Malignant melanoma
     Dosage: UNK (DABRAFENIBMESILAT STRENGTH 88.88 MG)
     Route: 065

REACTIONS (1)
  - Actinic cheilitis [Unknown]

NARRATIVE: CASE EVENT DATE: 20250916
